FAERS Safety Report 5147692-X (Version None)
Quarter: 2006Q4

REPORT INFORMATION
  Report Type: 
  Country: None (occurrence: None)
  Receive Date: 20061110
  Receipt Date: 20061101
  Transmission Date: 20070319
  Serious: Yes (Life-Threatening, Hospitalization)
  Sender: FDA-Public Use
  Company Number: US-JNJFOC-20061100989

PATIENT
  Age: 75 Year
  Sex: Female

DRUGS (9)
  1. DURAGESIC-100 [Suspect]
     Indication: PROCEDURAL PAIN
     Route: 062
  2. DARVOCET [Concomitant]
     Route: 065
  3. NPH INSULIN [Concomitant]
     Indication: DIABETES MELLITUS
     Route: 058
  4. AVANDIA [Concomitant]
     Indication: DIABETES MELLITUS
     Route: 048
  5. AMARYL [Concomitant]
     Indication: DIABETES MELLITUS
     Route: 048
  6. NORVASC [Concomitant]
     Route: 065
  7. LANTUS [Concomitant]
     Route: 065
  8. MICARDIS [Concomitant]
     Route: 065
  9. SYNTHROID [Concomitant]
     Route: 065

REACTIONS (4)
  - CARDIAC FAILURE CONGESTIVE [None]
  - NAUSEA [None]
  - RESPIRATORY DEPRESSION [None]
  - VOMITING [None]
